FAERS Safety Report 20865577 (Version 2)
Quarter: 2022Q2

REPORT INFORMATION
  Report Type: Spontaneous
  Country: GB (occurrence: GB)
  Receive Date: 20220524
  Receipt Date: 20220606
  Transmission Date: 20220720
  Serious: Yes (Other)
  Sender: FDA-Public Use
  Company Number: GB-MLMSERVICE-20220505-3535585-1

PATIENT
  Age: 71 Year
  Sex: Female

DRUGS (1)
  1. ALENDRONIC ACID [Suspect]
     Active Substance: ALENDRONIC ACID
     Indication: Osteopenia
     Dosage: 70 MILLIGRAM, EVERY WEEK (FOR AT LEAST FIVE)
     Route: 065
     Dates: end: 2017

REACTIONS (3)
  - Osteonecrosis of external auditory canal [Recovering/Resolving]
  - Deafness [Recovering/Resolving]
  - Otitis externa [Recovering/Resolving]
